FAERS Safety Report 5424625-X (Version None)
Quarter: 2007Q3

REPORT INFORMATION
  Report Type: 
  Country: None (occurrence: None)
  Receive Date: 20070731
  Receipt Date: 20070525
  Transmission Date: 20080115
  Serious: No
  Sender: FDA-Public Use
  Company Number: US200705007111

PATIENT
  Age: 72 Year
  Sex: Female

DRUGS (13)
  1. BYETTA [Suspect]
     Indication: TYPE 2 DIABETES MELLITUS
     Dosage: 5 UG, SUBCUTANEOUS, 10 UG, 2/D, SUBCUTANEOUS
     Route: 058
     Dates: start: 20070424, end: 20070501
  2. BYETTA [Suspect]
     Indication: TYPE 2 DIABETES MELLITUS
     Dosage: 5 UG, SUBCUTANEOUS, 10 UG, 2/D, SUBCUTANEOUS
     Route: 058
     Dates: start: 20070501
  3. EXENATIDE (EXENATIDE) [Concomitant]
  4. GLIPIZIDE [Concomitant]
  5. FUROSEMIDE [Concomitant]
  6. SULINDAC [Concomitant]
  7. PREMARIN (ESTROGENS CONJUGATED, MEDROGESTONE) [Concomitant]
  8. ALPRAZOLAM [Concomitant]
  9. ACETAMINOPHEN [Concomitant]
  10. VITAMIN B12 [Concomitant]
  11. METFORMIN HCL [Concomitant]
  12. PRINIVIL [Concomitant]
  13. OMEPRAZOLE [Concomitant]

REACTIONS (4)
  - CONSTIPATION [None]
  - HEADACHE [None]
  - NAUSEA [None]
  - TINNITUS [None]
